FAERS Safety Report 16371438 (Version 1)
Quarter: 2019Q2

REPORT INFORMATION
  Report Type: Spontaneous
  Country: US (occurrence: US)
  Receive Date: 20190530
  Receipt Date: 20190530
  Transmission Date: 20190711
  Serious: Yes (Other)
  Sender: FDA-Public Use
  Company Number: US-PFIZER INC-2019226192

PATIENT
  Age: 28 Year
  Sex: Male

DRUGS (1)
  1. XELJANZ [Suspect]
     Active Substance: TOFACITINIB CITRATE
     Dosage: 10 MG, UNK

REACTIONS (7)
  - Sinusitis [Unknown]
  - Bowel movement irregularity [Unknown]
  - Haematochezia [Unknown]
  - Product dose omission [Unknown]
  - Abdominal pain [Unknown]
  - Abdominal discomfort [Unknown]
  - Toothache [Unknown]
